FAERS Safety Report 9269673 (Version 2)
Quarter: 2013Q2

REPORT INFORMATION
  Report Type: Spontaneous
  Country: DK (occurrence: JP)
  Receive Date: 20130503
  Receipt Date: 20130517
  Transmission Date: 20140414
  Serious: Yes (Hospitalization)
  Sender: FDA-Public Use
  Company Number: JP-FRI-1000044889

PATIENT
  Age: 63 Year
  Sex: Female

DRUGS (6)
  1. LEXAPRO [Suspect]
     Indication: BIPOLAR DISORDER
     Dosage: 10 MG
     Route: 048
     Dates: start: 20130308, end: 20130401
  2. LIMAS [Suspect]
     Dosage: 200 MG
     Route: 048
     Dates: start: 20110401, end: 20130401
  3. AMOXAN [Suspect]
     Dosage: 150 MG
     Route: 048
     Dates: start: 20130319, end: 20130401
  4. DIOVAN [Concomitant]
     Route: 048
  5. SOLANAX [Concomitant]
     Route: 048
  6. LENDEM [Concomitant]
     Route: 048

REACTIONS (1)
  - Anaphylactic reaction [Recovering/Resolving]
